FAERS Safety Report 24328759 (Version 2)
Quarter: 2024Q4

REPORT INFORMATION
  Report Type: Spontaneous
  Country: FR (occurrence: FR)
  Receive Date: 20240917
  Receipt Date: 20241003
  Transmission Date: 20250115
  Serious: Yes (Disabling, Other)
  Sender: MYLAN
  Company Number: FR-SUBSTIPHV-202413387

PATIENT
  Sex: Male

DRUGS (1)
  1. DOXAZOSIN MESYLATE [Suspect]
     Active Substance: DOXAZOSIN MESYLATE
     Indication: Product used for unknown indication
     Dosage: 1 DOSAGE FORM, TOTAL,(1 TOTAL, A SINGLE DOSE,PROLONGED-RELEASE TABLET)
     Route: 065
     Dates: start: 2014, end: 2014

REACTIONS (7)
  - Loss of consciousness [Recovered/Resolved]
  - Jaw fracture [Unknown]
  - Dysphonia [Unknown]
  - Mastication disorder [Unknown]
  - Malocclusion [Unknown]
  - Fall [Unknown]
  - Orthognathic surgery [Unknown]

NARRATIVE: CASE EVENT DATE: 20140101
